FAERS Safety Report 16706602 (Version 1)
Quarter: 2019Q3

REPORT INFORMATION
  Report Type: Spontaneous
  Country: US (occurrence: US)
  Receive Date: 20190815
  Receipt Date: 20190815
  Transmission Date: 20191004
  Serious: No
  Sender: FDA-Public Use
  Company Number: US-PACIRA-201600039

PATIENT
  Age: 60 Year
  Sex: Female

DRUGS (2)
  1. ROPIVACAINE. [Suspect]
     Active Substance: ROPIVACAINE HYDROCHLORIDE
     Indication: NERVE BLOCK
     Dosage: 10 ML 0.5% ROPIVACAINE AND 10 ML EXPAREL WERE MIXED TOGETHER
     Route: 065
     Dates: start: 20160912, end: 20160912
  2. EXPAREL [Suspect]
     Active Substance: BUPIVACAINE
     Indication: NERVE BLOCK
     Dosage: 10 ML OF EXPAREL WERE MIXED TOGETHER WITH 10 ML 0.5% ROPIVACAINE
     Route: 065
     Dates: start: 20160912, end: 20160912

REACTIONS (1)
  - Labelled drug-drug interaction medication error [Unknown]

NARRATIVE: CASE EVENT DATE: 20160912
